FAERS Safety Report 5363469-4 (Version None)
Quarter: 2007Q2

REPORT INFORMATION
  Report Type: 
  Country: None (occurrence: None)
  Receive Date: 20070620
  Receipt Date: 20070618
  Transmission Date: 20071010
  Serious: Yes (Death, Hospitalization, Other)
  Sender: FDA-Public Use
  Company Number: FR-BRISTOL-MYERS SQUIBB COMPANY-13819065

PATIENT
  Age: 75 Year
  Sex: Female

DRUGS (5)
  1. HYDREA [Suspect]
     Indication: THROMBOCYTOPENIA
     Route: 048
     Dates: start: 19950615, end: 19991130
  2. TAXOL [Suspect]
     Indication: BREAST CANCER
     Route: 042
     Dates: start: 20050905, end: 20060109
  3. HERCEPTIN [Suspect]
     Indication: BREAST CANCER
     Dates: start: 20050905, end: 20060808
  4. CARBOPLATIN [Suspect]
     Indication: BREAST CANCER
  5. ARIMIDEX [Suspect]
     Indication: BREAST CANCER
     Dates: start: 20060414

REACTIONS (1)
  - ACUTE MYELOID LEUKAEMIA [None]
